FAERS Safety Report 21905148 (Version 1)
Quarter: 2023Q1

REPORT INFORMATION
  Report Type: Spontaneous
  Country: PL (occurrence: None)
  Receive Date: 20230124
  Receipt Date: 20230124
  Transmission Date: 20230417
  Serious: Yes (Death, Hospitalization, Other)
  Sender: FDA-Public Use
  Company Number: 2023A017563

PATIENT
  Age: 74 Year
  Sex: Female

DRUGS (1)
  1. DAPAGLIFLOZIN [Suspect]
     Active Substance: DAPAGLIFLOZIN
     Route: 048

REACTIONS (6)
  - Genital tract inflammation [Fatal]
  - Sepsis [Unknown]
  - Intestinal perforation [Unknown]
  - Cellulitis [Unknown]
  - Necrosis [Unknown]
  - Inflammation [Unknown]
